FAERS Safety Report 7038471-7 (Version None)
Quarter: 2010Q4

REPORT INFORMATION
  Report Type: 
  Country: None (occurrence: None)
  Receive Date: 20101011
  Receipt Date: 20100316
  Transmission Date: 20110411
  Serious: No
  Sender: FDA-Public Use
  Company Number: US-PFIZER INC-2010034575

PATIENT
  Sex: Male
  Weight: 129.25 kg

DRUGS (3)
  1. NEURONTIN [Suspect]
     Indication: BIPOLAR DISORDER
  2. RITALIN [Concomitant]
     Dosage: UNK
  3. BUSPAR [Concomitant]
     Dosage: UNK

REACTIONS (1)
  - MALAISE [None]
